FAERS Safety Report 7342655-8 (Version None)
Quarter: 2011Q1

REPORT INFORMATION
  Report Type: 
  Country: None (occurrence: None)
  Receive Date: 20110310
  Receipt Date: 20100927
  Transmission Date: 20110831
  Serious: Yes (Other)
  Sender: FDA-Public Use
  Company Number: US-BAYER-201017353NA

PATIENT
  Sex: Female
  Weight: 63.636 kg

DRUGS (14)
  1. ALLEGRA [Concomitant]
     Indication: MULTIPLE ALLERGIES
     Dates: start: 20050101
  2. UNCODEABLE ^UNCLASSIFIABLE^ [Concomitant]
     Indication: ANALGESIC THERAPY
  3. YASMIN [Suspect]
     Dosage: UNK
     Dates: start: 20051001, end: 20061101
  4. ASTELIN [Concomitant]
  5. CLINDAMYCIN [Concomitant]
  6. YAZ [Suspect]
     Dosage: UNK UNK, UNK
     Route: 048
     Dates: start: 20070111, end: 20080211
  7. VALTREX [Concomitant]
  8. IMITREX [Concomitant]
  9. NITROFURANTOIN [Concomitant]
  10. TRAMADOL [Concomitant]
  11. LEVAQUIN [Concomitant]
  12. ADVIL [Concomitant]
     Indication: ANALGESIC THERAPY
  13. AZITHROMYCIN [Concomitant]
  14. FLUCONAZOLE [Concomitant]

REACTIONS (2)
  - THROMBOSIS [None]
  - DEEP VEIN THROMBOSIS [None]
